FAERS Safety Report 4727412-0 (Version None)
Quarter: 2005Q3

REPORT INFORMATION
  Report Type: 
  Country: None (occurrence: None)
  Receive Date: 20050726
  Receipt Date: 20050715
  Transmission Date: 20060218
  Serious: Yes (Other)
  Sender: FDA-Public Use
  Company Number: 2005085576

PATIENT
  Age: 36 Year
  Sex: Male

DRUGS (4)
  1. ZOLOFT [Suspect]
     Indication: OBSESSIVE-COMPULSIVE DISORDER
     Dosage: 200 MG (200 MG, 1 IN 1 D),ORAL
     Route: 048
     Dates: start: 20050101
  2. WELLBUTRIN XL [Suspect]
     Indication: ILL-DEFINED DISORDER
     Dates: end: 20050101
  3. WELLBUTRIN [Concomitant]
  4. ATIVAN [Concomitant]

REACTIONS (2)
  - BLOOD CREATINE PHOSPHOKINASE INCREASED [None]
  - MYALGIA [None]
